FAERS Safety Report 22397320 (Version 1)
Quarter: 2023Q2

REPORT INFORMATION
  Report Type: Spontaneous
  Country: US (occurrence: US)
  Receive Date: 20230602
  Receipt Date: 20230602
  Transmission Date: 20230721
  Serious: Yes (Life-Threatening, Hospitalization, Other)
  Sender: FDA-Public Use
  Company Number: US-GLENMARK PHARMACEUTICALS-2023GMK082218

PATIENT

DRUGS (4)
  1. TACROLIMUS [Interacting]
     Active Substance: TACROLIMUS
     Indication: Immunosuppressant drug therapy
     Dosage: UNK
     Route: 065
     Dates: start: 201911
  2. MYCOPHENOLIC ACID [Interacting]
     Active Substance: MYCOPHENOLIC ACID
     Indication: Immunosuppressant drug therapy
     Dosage: UNK
     Route: 065
     Dates: start: 201911, end: 20200906
  3. EVEROLIMUS [Interacting]
     Active Substance: EVEROLIMUS
     Indication: Immunosuppressant drug therapy
     Dosage: UNK
     Route: 065
     Dates: start: 20201003, end: 20201101
  4. PREDNISONE [Concomitant]
     Active Substance: PREDNISONE
     Indication: Immunosuppressant drug therapy
     Dosage: UNK
     Route: 065
     Dates: start: 201911

REACTIONS (10)
  - Drug interaction [Recovered/Resolved]
  - Oesophageal ulcer [Recovered/Resolved]
  - Gastric ulcer haemorrhage, obstructive [Recovered/Resolved]
  - Ileal ulcer [Recovered/Resolved]
  - Haemoglobin decreased [Recovered/Resolved]
  - Gastric ulcer perforation [Recovered/Resolved]
  - Large intestine perforation [Recovered/Resolved]
  - Gastrointestinal ulcer perforation [Recovered/Resolved]
  - Weight decreased [Recovered/Resolved]
  - Peritonitis [Recovered/Resolved]

NARRATIVE: CASE EVENT DATE: 20200901
